FAERS Safety Report 8790798 (Version 1)
Quarter: 2012Q4

REPORT INFORMATION
  Report Type: Spontaneous
  Country: US (occurrence: None)
  Receive Date: 20120906
  Receipt Date: 20120906
  Transmission Date: 20130627
  Serious: Yes (Life-Threatening, Hospitalization)
  Sender: FDA-Public Use
  Company Number: 100222-000047

PATIENT
  Age: 18 Year
  Sex: Female

DRUGS (3)
  1. PROACTIV RENEWING CLEANSER [Suspect]
     Indication: ACNE
     Dosage: once daily dermal
     Dates: start: 20091203, end: 20120211
  2. PROACTIV REPAIRING TREATMENT [Suspect]
     Indication: ACNE
     Dosage: once daily dermal
     Dates: start: 20091203, end: 20100211
  3. BIRTH CONTROL PILLS [Concomitant]

REACTIONS (3)
  - Erythema [None]
  - Pruritus [None]
  - Swelling [None]
